FAERS Safety Report 11123056 (Version 1)
Quarter: 2015Q2

REPORT INFORMATION
  Report Type: Spontaneous
  Country: US (occurrence: US)
  Receive Date: 20150519
  Receipt Date: 20150519
  Transmission Date: 20150821
  Serious: Yes (Death, Hospitalization, Other)
  Sender: FDA-Public Use
  Company Number: US-GLAXOSMITHKLINE-US2015066593

PATIENT
  Age: 65 Year
  Sex: Male

DRUGS (6)
  1. LASIX [Concomitant]
     Active Substance: FUROSEMIDE
  2. WARFARIN [Concomitant]
     Active Substance: WARFARIN
  3. GABAPENTIN. [Concomitant]
     Active Substance: GABAPENTIN
  4. MORPHINE [Concomitant]
     Active Substance: MORPHINE
  5. OXYCONTIN [Concomitant]
     Active Substance: OXYCODONE HYDROCHLORIDE
  6. VOTRIENT [Suspect]
     Active Substance: PAZOPANIB HYDROCHLORIDE
     Indication: COLON CANCER
     Dosage: 600 MG, 1D
     Dates: start: 201210

REACTIONS (6)
  - Fall [Recovered/Resolved]
  - Pain [Not Recovered/Not Resolved]
  - Renal failure [Unknown]
  - Cerebrovascular accident [Unknown]
  - Malignant neoplasm progression [Fatal]
  - Neoplasm [Recovered/Resolved]

NARRATIVE: CASE EVENT DATE: 201212
